FAERS Safety Report 9107029 (Version 2)
Quarter: 2013Q3

REPORT INFORMATION
  Report Type: Report from Study
  Country: US (occurrence: US)
  Receive Date: 20130221
  Receipt Date: 20130710
  Transmission Date: 20140515
  Serious: Yes (Hospitalization)
  Sender: FDA-Public Use
  Company Number: US-ELI_LILLY_AND_COMPANY-US201203007005

PATIENT
  Age: 72 Year
  Sex: Female

DRUGS (12)
  1. TERIPARATIDE [Suspect]
     Indication: OSTEOPOROSIS
     Dosage: 20 UG, QD
     Dates: start: 20120309
  2. TERIPARATIDE [Suspect]
     Dosage: 20 UG, QD
  3. TERIPARATIDE [Suspect]
     Dosage: 20 UG, QD
     Dates: end: 20120428
  4. TERIPARATIDE [Suspect]
     Dosage: 20 UG, QD
     Dates: start: 20120509
  5. TERIPARATIDE [Suspect]
     Dosage: 20 UG, QD
  6. TERIPARATIDE [Suspect]
     Dosage: 20 UG, QD
  7. TERIPARATIDE [Suspect]
     Dosage: 20 UG, QD
  8. TYLENOL WITH CODEINE [Concomitant]
     Indication: ROTATOR CUFF SYNDROME
     Dosage: UNK, UNKNOWN
     Route: 065
  9. VICODIN [Concomitant]
     Indication: ROTATOR CUFF SYNDROME
     Dosage: UNK, UNKNOWN
     Route: 065
  10. ATIVAN [Concomitant]
     Dosage: 1 MG, UNKNOWN
     Route: 065
     Dates: start: 2007
  11. BUSPAR [Concomitant]
     Indication: DEPRESSION
     Dosage: UNK, UNKNOWN
     Route: 065
  12. SYNTHROID [Concomitant]

REACTIONS (26)
  - Abscess intestinal [Unknown]
  - Back disorder [Unknown]
  - Pain [Unknown]
  - Malaise [Unknown]
  - Rheumatoid arthritis [Unknown]
  - Diverticulum [Unknown]
  - Musculoskeletal pain [Unknown]
  - Myalgia [Unknown]
  - Rotator cuff syndrome [Unknown]
  - Blood test abnormal [Unknown]
  - Tremor [Not Recovered/Not Resolved]
  - Arthritis [Not Recovered/Not Resolved]
  - Malaise [Not Recovered/Not Resolved]
  - Nightmare [Not Recovered/Not Resolved]
  - Muscular weakness [Unknown]
  - Limb discomfort [Unknown]
  - Gait disturbance [Unknown]
  - Nervousness [Unknown]
  - Anxiety [Unknown]
  - Hypokinesia [Unknown]
  - Medication error [Unknown]
  - Insomnia related to another mental condition [Not Recovered/Not Resolved]
  - Asthenia [Unknown]
  - Muscle spasms [Not Recovered/Not Resolved]
  - Incorrect product storage [Unknown]
  - Drug dose omission [Unknown]
